FAERS Safety Report 10014891 (Version 1)
Quarter: 2014Q1

REPORT INFORMATION
  Report Type: Spontaneous
  Country: DE (occurrence: DE)
  Receive Date: 20140317
  Receipt Date: 20140317
  Transmission Date: 20141002
  Serious: Yes (Other)
  Sender: FDA-Public Use
  Company Number: DE-PFIZER INC-2014071243

PATIENT
  Age: 29 Year
  Sex: Female
  Weight: 62 kg

DRUGS (5)
  1. SERTRALINE HCL [Suspect]
     Indication: ANXIETY DISORDER
     Dosage: 125 MG DAILY (BIS 100 )
     Route: 048
     Dates: start: 20120120, end: 20121015
  2. OPIPRAMOL [Suspect]
     Indication: DEPRESSION
     Dosage: 50 MG, ONCE A DAY
     Route: 048
     Dates: start: 20120120
  3. ZOPICLONE [Suspect]
     Indication: SLEEP DISORDER
     Dosage: 7.5 MG ONCE A DAY ON DEMAND
     Route: 048
     Dates: start: 20120120
  4. CENTRUM MATERNA [Concomitant]
     Indication: PROPHYLAXIS OF NEURAL TUBE DEFECT
     Dosage: 0.4 MG, ONCE A DAY
     Route: 048
     Dates: start: 20120302, end: 20121015
  5. NASENTROPFEN K [Concomitant]
     Indication: SUBSTANCE ABUSER
     Dosage: UNK, ONCE A NIGHT
     Route: 045
     Dates: start: 20120120, end: 20121015

REACTIONS (1)
  - Anogenital warts [Recovered/Resolved]
